FAERS Safety Report 10184024 (Version 1)
Quarter: 2014Q2

REPORT INFORMATION
  Report Type: Spontaneous
  Country: TR (occurrence: TR)
  Receive Date: 20140520
  Receipt Date: 20140520
  Transmission Date: 20141212
  Serious: Yes (Hospitalization, Other)
  Sender: FDA-Public Use
  Company Number: TR-WATSON-2014-10357

PATIENT
  Age: 78 Year
  Sex: Female

DRUGS (2)
  1. METHYLPREDNISOLONE (UNKNOWN) [Suspect]
     Indication: TEMPORAL ARTERITIS
     Dosage: 48 MG, DAILY
     Route: 065
  2. AMPICILLIN/SULBACTAM [Suspect]
     Indication: PNEUMONIA
     Dosage: UNKNOWN
     Route: 042

REACTIONS (3)
  - Cytomegalovirus oesophagitis [Recovered/Resolved]
  - Diabetes mellitus [Unknown]
  - Pneumonia [Unknown]
